FAERS Safety Report 9834925 (Version 7)
Quarter: 2014Q2

REPORT INFORMATION
  Report Type: Report from Study
  Country: US (occurrence: US)
  Receive Date: 20140122
  Receipt Date: 20140416
  Transmission Date: 20141212
  Serious: Yes (Hospitalization)
  Sender: FDA-Public Use
  Company Number: US-ACTELION-A-NJ2014-93942

PATIENT
  Age: 75 Year
  Sex: Female

DRUGS (16)
  1. VENTAVIS [Suspect]
     Indication: PULMONARY ARTERIAL HYPERTENSION
     Dosage: 5 MCG, 6XDAY
     Route: 055
     Dates: start: 20131024, end: 20140211
  2. TRACLEER [Suspect]
     Indication: PULMONARY ARTERIAL HYPERTENSION
     Dosage: 125 MG, BID
     Route: 048
     Dates: start: 2005
  3. REMODULIN [Concomitant]
     Dosage: UNK
     Dates: start: 20140211
  4. K-DUR [Concomitant]
     Dosage: 20 MEQ TABS II QD
  5. LASIX [Concomitant]
     Dosage: 40 MG, BID
  6. METFORMIN [Concomitant]
     Dosage: 1000 MG, QAM
  7. SINGULAIR [Concomitant]
     Dosage: 10 MG, QPM
  8. PRILOSEC [Concomitant]
     Dosage: 40 MG, QD
  9. SYNTHROID [Concomitant]
     Dosage: 100 MCG, QD
  10. LOPRESSOR [Concomitant]
     Dosage: 25 MG, BID
  11. NIFEDIPINE [Concomitant]
     Dosage: 90 MG, QD
  12. BIMATOPROST [Concomitant]
     Dosage: 1 GTT, EACH EYE AT NIGHT
     Route: 047
  13. BETAMETHASONE [Concomitant]
     Route: 003
  14. FLUTICASONE [Concomitant]
     Dosage: 2 SPRAY, DAILY EACH NARES
     Route: 045
  15. LOSARTAN [Concomitant]
     Dosage: 25 MG, QD
     Dates: start: 201312
  16. SIMVASTATIN [Concomitant]
     Dosage: 40 MG, QD
     Dates: start: 201401

REACTIONS (10)
  - Gait disturbance [Recovering/Resolving]
  - Heart rate decreased [Recovering/Resolving]
  - Cardiac failure congestive [Unknown]
  - Abdominal distension [Unknown]
  - Peripheral swelling [Unknown]
  - Pulmonary hypertension [Recovering/Resolving]
  - Dyspnoea [Recovering/Resolving]
  - Pulmonary arterial pressure increased [Recovering/Resolving]
  - Fluid overload [Unknown]
  - No therapeutic response [Unknown]
